FAERS Safety Report 5742590-2 (Version None)
Quarter: 2008Q2

REPORT INFORMATION
  Report Type: 
  Country: None (occurrence: None)
  Receive Date: 20080515
  Receipt Date: 20080515
  Transmission Date: 20081010
  Serious: Yes (Other)
  Sender: FDA-Public Use
  Company Number: None

PATIENT
  Sex: Male
  Weight: 83.9154 kg

DRUGS (1)
  1. CICLOPIROX [Suspect]
     Indication: ONYCHOMYCOSIS
     Dosage: LIGHT APPLICATION OF CICLOPIROX ENTIRE NAIL DAILY NAIL BED
     Dates: start: 20071210, end: 20080307

REACTIONS (4)
  - CONDITION AGGRAVATED [None]
  - DRUG INEFFECTIVE [None]
  - ONYCHOMYCOSIS [None]
  - THERAPEUTIC RESPONSE UNEXPECTED WITH DRUG SUBSTITUTION [None]
